FAERS Safety Report 18470625 (Version 1)
Quarter: 2020Q4

REPORT INFORMATION
  Report Type: Report from Study
  Country: GB (occurrence: GB)
  Receive Date: 20201105
  Receipt Date: 20201105
  Transmission Date: 20210114
  Serious: Yes (Other)
  Sender: FDA-Public Use
  Company Number: GB-SHIRE-GB202030584

PATIENT

DRUGS (3)
  1. SATIVEX [Suspect]
     Active Substance: NABIXIMOLS
     Dosage: UNK
     Route: 002
     Dates: start: 20200902, end: 20200905
  2. SATIVEX [Suspect]
     Active Substance: NABIXIMOLS
     Dosage: UNK
     Route: 002
     Dates: start: 20200907
  3. SATIVEX [Suspect]
     Active Substance: NABIXIMOLS
     Indication: DRUG LEVEL
     Dosage: UNK, BID
     Route: 002
     Dates: start: 20200828, end: 20200909

REACTIONS (11)
  - Nausea [Recovered/Resolved]
  - Dizziness [Recovered/Resolved]
  - Depressed level of consciousness [Recovered/Resolved]
  - Limb discomfort [Recovered/Resolved]
  - Arthralgia [Unknown]
  - Memory impairment [Recovered/Resolved]
  - Product use issue [Unknown]
  - Abdominal discomfort [Recovered/Resolved]
  - Dizziness postural [Recovered/Resolved]
  - Somnolence [Recovered/Resolved]
  - Disorientation [Unknown]

NARRATIVE: CASE EVENT DATE: 20200825
